FAERS Safety Report 10079524 (Version 1)
Quarter: 2014Q2

REPORT INFORMATION
  Report Type: Spontaneous
  Country: US (occurrence: None)
  Receive Date: 20140414
  Receipt Date: 20140414
  Transmission Date: 20141212
  Serious: Yes (Disabling)
  Sender: FDA-Public Use
  Company Number: None

PATIENT
  Age: 51 Year
  Sex: Female
  Weight: 63.5 kg

DRUGS (1)
  1. BOTOX [Suspect]
     Indication: TREMOR
     Dates: start: 20131017

REACTIONS (7)
  - Neck pain [None]
  - Musculoskeletal pain [None]
  - Burning sensation [None]
  - Paraesthesia [None]
  - Insomnia [None]
  - Musculoskeletal stiffness [None]
  - Osteoarthritis [None]
